FAERS Safety Report 4313921-5 (Version None)
Quarter: 2004Q1

REPORT INFORMATION
  Report Type: 
  Country: None (occurrence: None)
  Receive Date: 20040305
  Receipt Date: 20040220
  Transmission Date: 20041129
  Serious: Yes (Hospitalization)
  Sender: FDA-Public Use
  Company Number: 2004SE00909

PATIENT
  Age: 75 Year
  Sex: Male

DRUGS (2)
  1. NEXIUM [Suspect]
     Indication: OESOPHAGITIS
     Dosage: 40 MG DAILY PO
     Route: 048
     Dates: start: 20040118
  2. WARAN [Suspect]
     Dates: end: 20040118

REACTIONS (3)
  - DRUG INTERACTION [None]
  - INTERNATIONAL NORMALISED RATIO INCREASED [None]
  - PROTHROMBIN LEVEL DECREASED [None]
